FAERS Safety Report 7208318-4 (Version None)
Quarter: 2010Q4

REPORT INFORMATION
  Report Type: 
  Country: None (occurrence: None)
  Receive Date: 20101126
  Receipt Date: 20101007
  Transmission Date: 20110411
  Serious: Yes (Other)
  Sender: FDA-Public Use
  Company Number: 316394

PATIENT
  Age: 67 Year
  Sex: Male
  Weight: 104.3 kg

DRUGS (7)
  1. VICTOZA [Suspect]
     Indication: TYPE 2 DIABETES MELLITUS
     Dosage: 1.8 MG, QD, SUBCUTANEOUS
     Route: 058
     Dates: start: 20100720, end: 20100903
  2. ENALAPRIL /00574902/ (ENALAPRIL MALEATE) [Concomitant]
  3. DEMADEX /0136501/ (TORASEMIDE) [Concomitant]
  4. CRESTOR [Concomitant]
  5. ZETIA [Concomitant]
  6. NEURONTIN [Concomitant]
  7. SINEMET [Concomitant]

REACTIONS (1)
  - PANCREATITIS ACUTE [None]
